FAERS Safety Report 8518706-1 (Version None)
Quarter: 2012Q3

REPORT INFORMATION
  Report Type: 
  Country: None (occurrence: None)
  Receive Date: 20120718
  Receipt Date: 20110614
  Transmission Date: 20120928
  Serious: No
  Sender: FDA-Public Use
  Company Number: US-BRISTOL-MYERS SQUIBB COMPANY-15835291

PATIENT

DRUGS (5)
  1. ALTACE [Suspect]
     Dosage: UNK-2011 2011-ONG
     Route: 065
  2. COREG [Suspect]
     Dosage: UNK-2011 2011-ONG
     Route: 065
  3. WARFARIN SODIUM [Suspect]
     Dosage: UNK-2011 2011-ONG
  4. ZOCOR [Suspect]
     Dosage: UNK-2011 2011-ONG
     Route: 065
  5. LANTUS [Suspect]
     Dosage: 1DF=100 IU/ML UNK-2011 2011-ONG,SC LANTUS INJ SOL
     Route: 058

REACTIONS (3)
  - DYSPNOEA [None]
  - DIZZINESS [None]
  - ASTHENIA [None]
